FAERS Safety Report 6502688-8 (Version None)
Quarter: 2009Q4

REPORT INFORMATION
  Report Type: 
  Country: None (occurrence: None)
  Receive Date: 20091217
  Receipt Date: 20091208
  Transmission Date: 20100525
  Serious: Yes (Other)
  Sender: FDA-Public Use
  Company Number: US-JNJFOC-20091204449

PATIENT
  Sex: Female

DRUGS (3)
  1. NORETHIDRONE [Suspect]
     Indication: CONTRACEPTION
     Route: 048
  2. NORETHIDRONE/ETHINYL ESTRADIOL [Suspect]
     Indication: CONTRACEPTION
     Route: 048
  3. NORETHINDRONE ACETATE [Suspect]
     Indication: CONTRACEPTION
     Route: 048

REACTIONS (3)
  - DRUG EXPOSURE DURING PREGNANCY [None]
  - PREGNANCY ON ORAL CONTRACEPTIVE [None]
  - TREATMENT NONCOMPLIANCE [None]
